FAERS Safety Report 5066847-6 (Version None)
Quarter: 2006Q3

REPORT INFORMATION
  Report Type: 
  Country: None (occurrence: None)
  Receive Date: 20060726
  Receipt Date: 20060714
  Transmission Date: 20061208
  Serious: Yes (Death)
  Sender: FDA-Public Use
  Company Number: HQWYE124519JUL06

PATIENT
  Age: 50 Year
  Sex: Female
  Weight: 48 kg

DRUGS (4)
  1. TYGACIL [Suspect]
     Indication: BACTERAEMIA
     Dosage: 50 MG 1X PER 12 HR, INTRAVENOUS
     Route: 042
     Dates: start: 20060701, end: 20060713
  2. TYGACIL [Suspect]
     Indication: SEPSIS
     Dosage: 50 MG 1X PER 12 HR, INTRAVENOUS
     Route: 042
     Dates: start: 20060701, end: 20060713
  3. HALOPERIDOL [Concomitant]
  4. UNSPECIFIED PAIN MEDICATION (UNSPECIFIED PAIN MEDICATION) [Concomitant]

REACTIONS (1)
  - THROMBOCYTOPENIA [None]
